FAERS Safety Report 18070320 (Version 3)
Quarter: 2020Q4

REPORT INFORMATION
  Report Type: Spontaneous
  Country: DE (occurrence: DE)
  Receive Date: 20200727
  Receipt Date: 20201030
  Transmission Date: 20210113
  Serious: Yes (Hospitalization)
  Sender: FDA-Public Use
  Company Number: DE-UCBSA-2020028317

PATIENT
  Sex: Female

DRUGS (9)
  1. NEUPRO [Suspect]
     Active Substance: ROTIGOTINE
     Dosage: 6 MILLIGRAM
     Dates: start: 2020, end: 2020
  2. COMTESS [Concomitant]
     Active Substance: ENTACAPONE
     Indication: PRODUCT USED FOR UNKNOWN INDICATION
     Dosage: 1000 MG
  3. NEUPRO [Suspect]
     Active Substance: ROTIGOTINE
     Indication: PARKINSON^S DISEASE
     Dosage: 2 MILLIGRAM
  4. NEUPRO [Suspect]
     Active Substance: ROTIGOTINE
     Dosage: 8 MILLIGRAM (DOSE INCREASED DIRECTLY TO 8MG)
  5. NEUPRO [Suspect]
     Active Substance: ROTIGOTINE
     Dosage: 4 MILLIGRAM
     Dates: start: 2020, end: 2020
  6. NEUPRO [Suspect]
     Active Substance: ROTIGOTINE
     Dosage: 8 MILLIGRAM
     Dates: start: 2020, end: 2020
  7. NEUPRO [Suspect]
     Active Substance: ROTIGOTINE
     Dosage: 4MG
     Dates: start: 2020
  8. NEUPRO [Suspect]
     Active Substance: ROTIGOTINE
     Dosage: 2 MILLIGRAM
     Dates: start: 202001, end: 2020
  9. NEUPRO [Suspect]
     Active Substance: ROTIGOTINE
     Dosage: ADJUSTED TO 3MG
     Dates: start: 2020, end: 2020

REACTIONS (9)
  - Somnolence [Recovered/Resolved]
  - Hospitalisation [Unknown]
  - Dizziness [Unknown]
  - Circulatory collapse [Recovered/Resolved]
  - Nausea [Unknown]
  - Head discomfort [Recovered/Resolved]
  - Gait disturbance [Recovered/Resolved]
  - Vomiting [Unknown]
  - Drug dose titration not performed [Unknown]
